FAERS Safety Report 10697510 (Version 2)
Quarter: 2015Q2

REPORT INFORMATION
  Report Type: Spontaneous
  Country: CA (occurrence: None)
  Receive Date: 20150106
  Receipt Date: 20150423
  Transmission Date: 20150821
  Serious: Yes (Hospitalization)
  Sender: FDA-Public Use
  Company Number: CA-2014VAL000687

PATIENT
  Age: 26 Year
  Sex: Female

DRUGS (4)
  1. DIGOXIN (DIGOXIN) [Suspect]
     Active Substance: DIGOXIN
     Indication: ATRIAL FLUTTER
  2. ENOXAPARIN (ENOXAPARIN) [Suspect]
     Active Substance: ENOXAPARIN
     Indication: ATRIAL FLUTTER
  3. METOPROLOL TARTRATE (METOPROLOL TARTRATE) UNKNOWN [Suspect]
     Active Substance: METOPROLOL TARTRATE
     Indication: ATRIAL FLUTTER
     Route: 048
     Dates: start: 20130522, end: 20130712
  4. CERVIDIL [Suspect]
     Active Substance: DINOPROSTONE
     Indication: LABOUR INDUCTION

REACTIONS (3)
  - Atrial flutter [None]
  - Caesarean section [None]
  - Maternal exposure during pregnancy [None]
